FAERS Safety Report 4312066-8 (Version None)
Quarter: 2004Q1

REPORT INFORMATION
  Report Type: 
  Country: None (occurrence: None)
  Receive Date: 20040303
  Receipt Date: 20040220
  Transmission Date: 20041129
  Serious: Yes (Hospitalization, Other)
  Sender: FDA-Public Use
  Company Number: HQWYE995616JUL03

PATIENT
  Age: 82 Year
  Sex: Male

DRUGS (8)
  1. CORDARONE [Suspect]
     Dosage: 200 MG 3X PER 1 WK ORAL
     Route: 048
  2. FENOFIBRATE [Suspect]
     Dosage: ORAL
     Route: 048
  3. PREVISCAN (FLUINDIONE) [Suspect]
     Dosage: ORAL
     Route: 048
  4. RAMIPRIL [Suspect]
     Dosage: ORAL
     Route: 048
  5. TRIMETAZIDINE (TRIMETAZIDINE) [Suspect]
     Dosage: ORAL
     Route: 048
  6. NITROGLYCERIN [Suspect]
     Dosage: TRANSDERMAL
     Route: 062
  7. SPASSIREX (PHLOROGLUCINOL) [Concomitant]
  8. DOXAZOSIN MESYLATE [Concomitant]

REACTIONS (4)
  - DERMATITIS BULLOUS [None]
  - ERYTHEMA [None]
  - PHOTOSENSITIVITY REACTION [None]
  - PRURITUS [None]
